FAERS Safety Report 14881093 (Version 1)
Quarter: 2018Q2

REPORT INFORMATION
  Report Type: Spontaneous
  Country: US (occurrence: US)
  Receive Date: 20180511
  Receipt Date: 20180511
  Transmission Date: 20180711
  Serious: No
  Sender: FDA-Public Use
  Company Number: US-PFIZER INC-2018190329

PATIENT
  Age: 58 Year
  Sex: Female
  Weight: 55.34 kg

DRUGS (1)
  1. CHANTIX [Suspect]
     Active Substance: VARENICLINE TARTRATE
     Indication: SMOKING CESSATION THERAPY
     Dosage: 2X/DAY(FIRST WEEK WITH 0.5 NOW ON 1 POINT. ONE IN THE MORNING, ONE IN THE EVENING)

REACTIONS (2)
  - Feeling abnormal [Unknown]
  - Drug ineffective [Unknown]
